FAERS Safety Report 7561542-3 (Version None)
Quarter: 2011Q2

REPORT INFORMATION
  Report Type: 
  Country: None (occurrence: None)
  Receive Date: 20110621
  Receipt Date: 20100610
  Transmission Date: 20111010
  Serious: No
  Sender: FDA-Public Use
  Company Number: US-ASTRAZENECA-2010SE27095

PATIENT
  Age: 20893 Day
  Sex: Female
  Weight: 51.7 kg

DRUGS (5)
  1. PULMICORT FLEXHALER [Suspect]
     Indication: CHRONIC OBSTRUCTIVE PULMONARY DISEASE
     Dosage: 180 MCG BID
     Route: 055
     Dates: start: 20100603
  2. VALIUM [Concomitant]
     Indication: ANXIETY
  3. PREDNISONE TAB [Concomitant]
  4. TRAZODONE HCL [Concomitant]
     Indication: SLEEP DISORDER
  5. LORATADINE [Concomitant]

REACTIONS (2)
  - CHEST DISCOMFORT [None]
  - DEVICE MISUSE [None]
